FAERS Safety Report 12958302 (Version 1)
Quarter: 2016Q4

REPORT INFORMATION
  Report Type: Report from Study
  Country: US (occurrence: US)
  Receive Date: 20161121
  Receipt Date: 20161121
  Transmission Date: 20170207
  Serious: Yes (Other)
  Sender: FDA-Public Use
  Company Number: US-ROCHE-1855378

PATIENT
  Sex: Female

DRUGS (2)
  1. TRASTUZUMAB [Suspect]
     Active Substance: TRASTUZUMAB
     Indication: MALIGNANT PERITONEAL NEOPLASM
     Dosage: INITIAL DOSE.
     Route: 042
  2. TRASTUZUMAB [Suspect]
     Active Substance: TRASTUZUMAB
     Indication: OVARIAN CANCER
     Dosage: WEEKLY INFUSIONS WERE ADMINISTERED AT 2 MG/KG IN 250 ML OF NORMAL SALINE OVER 90 MINUTES, BUT THE IN
     Route: 042

REACTIONS (15)
  - Oedema [Unknown]
  - Hypokalaemia [Unknown]
  - Skin toxicity [Unknown]
  - Cardiotoxicity [Unknown]
  - Dyspnoea [Unknown]
  - Hyperglycaemia [Unknown]
  - Neurotoxicity [Unknown]
  - Toxicity to various agents [Unknown]
  - Anaemia [Unknown]
  - Pain [Unknown]
  - Pulmonary toxicity [Unknown]
  - Gastrointestinal toxicity [Unknown]
  - Nausea [Unknown]
  - Fatigue [Unknown]
  - Hypercalcaemia [Unknown]
